FAERS Safety Report 6139106-8 (Version None)
Quarter: 2009Q2

REPORT INFORMATION
  Report Type: 
  Country: None (occurrence: None)
  Receive Date: 20090401
  Receipt Date: 20090323
  Transmission Date: 20091009
  Serious: Yes (Other)
  Sender: FDA-Public Use
  Company Number: FR-RANBAXY-2009RR-22784

PATIENT
  Age: 18 Year
  Sex: Male

DRUGS (2)
  1. ISOTRETINOIN [Suspect]
     Indication: ACNE
     Dosage: 50 MG, QD
     Route: 048
     Dates: start: 20011201
  2. ISOTRETINOIN [Suspect]
     Dosage: 15 MG, QD
     Route: 048

REACTIONS (1)
  - SACROILIITIS [None]
